FAERS Safety Report 15500071 (Version 1)
Quarter: 2018Q4

REPORT INFORMATION
  Report Type: Spontaneous
  Country: NG (occurrence: NG)
  Receive Date: 20181015
  Receipt Date: 20181015
  Transmission Date: 20190205
  Serious: Yes (Death)
  Sender: FDA-Public Use
  Company Number: PHHY2018NG126148

PATIENT
  Sex: Male

DRUGS (1)
  1. UPERIO [Suspect]
     Active Substance: SACUBITRIL\VALSARTAN
     Indication: CARDIAC FAILURE
     Dosage: 200 MG, QD
     Route: 048
     Dates: start: 20180908, end: 20180919

REACTIONS (2)
  - Cardiovascular disorder [Fatal]
  - Inappropriate schedule of product administration [Unknown]
